FAERS Safety Report 4506423-4 (Version None)
Quarter: 2004Q4

REPORT INFORMATION
  Report Type: 
  Country: None (occurrence: None)
  Receive Date: 20041025
  Receipt Date: 20040802
  Transmission Date: 20050328
  Serious: Yes (Other)
  Sender: FDA-Public Use
  Company Number: US-JNJFOC-20040801010

PATIENT
  Age: 62 Year
  Sex: Female
  Weight: 60.3284 kg

DRUGS (12)
  1. REMICADE [Suspect]
     Indication: RHEUMATOID ARTHRITIS
     Dosage: INTRAVENOUS
     Route: 042
     Dates: start: 20040714
  2. REMICADE [Suspect]
     Indication: RHEUMATOID ARTHRITIS
     Dosage: INTRAVENOUS
     Route: 042
     Dates: start: 20040728
  3. ARAVA [Concomitant]
  4. THYROID TAB [Concomitant]
  5. ZIAC (BISELECT [Concomitant]
  6. HYDROCHLOROTHIAZIDE [Concomitant]
  7. PREMARIN [Concomitant]
  8. VITAMIN E [Concomitant]
  9. VITAMIN C (ASCORBIC ACID) [Concomitant]
  10. FOLIC ACID [Concomitant]
  11. ALPHAGAN (BRIMONIDINE TARTRATE) DROPS [Concomitant]
  12. XALATAN (LATANOPROST) DROPS [Concomitant]

REACTIONS (6)
  - HEADACHE [None]
  - PAIN [None]
  - PRURITUS [None]
  - PYREXIA [None]
  - RASH [None]
  - URTICARIA [None]
